FAERS Safety Report 18469737 (Version 2)
Quarter: 2020Q4

REPORT INFORMATION
  Report Type: Spontaneous
  Country: US (occurrence: US)
  Receive Date: 20201105
  Receipt Date: 20201113
  Transmission Date: 20210114
  Serious: Yes (Life-Threatening, Hospitalization, Other)
  Sender: FDA-Public Use
  Company Number: US-009507513-2011USA002012

PATIENT
  Age: 956 Month
  Sex: Female
  Weight: 52.2 kg

DRUGS (22)
  1. LIPITOR [Suspect]
     Active Substance: ATORVASTATIN CALCIUM
     Indication: BLOOD PRESSURE ABNORMAL
  2. PULMICORT FLEXHALER [Suspect]
     Active Substance: BUDESONIDE
     Dosage: 180 MCG,2 PUFFS TWO TIMES A DAY
     Route: 055
     Dates: start: 201307, end: 20130813
  3. KLOR-CON [Concomitant]
     Active Substance: POTASSIUM CHLORIDE
     Indication: MINERAL SUPPLEMENTATION
     Route: 048
  4. NORVASC [Concomitant]
     Active Substance: AMLODIPINE BESYLATE
     Indication: HYPERTENSION
     Route: 048
  5. PLAVIX [Concomitant]
     Active Substance: CLOPIDOGREL BISULFATE
     Dosage: 75 MILLIGRAM, QD
     Route: 048
     Dates: start: 2005, end: 201201
  6. PRINIVIL [Suspect]
     Active Substance: LISINOPRIL
     Dosage: 40 MILLIGRAM, QD
     Route: 048
  7. PULMICORT FLEXHALER [Suspect]
     Active Substance: BUDESONIDE
     Dosage: 180 MCG, 1 PUFF DAILY
     Route: 055
     Dates: start: 2008, end: 201206
  8. HYDROCODONE [Suspect]
     Active Substance: HYDROCODONE
     Indication: PAIN
     Dosage: UNK
     Dates: start: 2008
  9. NEXIUM I.V. [Suspect]
     Active Substance: ESOMEPRAZOLE SODIUM
     Indication: DYSPEPSIA
     Route: 048
  10. PULMICORT FLEXHALER [Suspect]
     Active Substance: BUDESONIDE
     Indication: ASTHMA
     Dosage: 180 MCG, 2 PUFFS DAILY
     Route: 055
     Dates: start: 201211
  11. PULMICORT FLEXHALER [Suspect]
     Active Substance: BUDESONIDE
     Dosage: 180 MCG, 1 PUFF DAILY
     Route: 055
     Dates: start: 200706
  12. MAGNESIUM OXIDE. [Concomitant]
     Active Substance: MAGNESIUM OXIDE
     Indication: HEART RATE ABNORMAL
     Dosage: 400 MILLIGRAM, QD
     Route: 048
     Dates: start: 200908
  13. ASPIRIN. [Concomitant]
     Active Substance: ASPIRIN
     Indication: ANTIPLATELET THERAPY
     Dosage: 81 MILLIGRAM, QD
     Route: 048
     Dates: start: 2002
  14. ASPIRIN. [Concomitant]
     Active Substance: ASPIRIN
     Indication: MYOCARDIAL INFARCTION
  15. PRINIVIL [Suspect]
     Active Substance: LISINOPRIL
     Indication: HYPERTENSION
     Dosage: 20 MILLIGRAM, QD
     Route: 048
     Dates: start: 2011
  16. LIPITOR [Suspect]
     Active Substance: ATORVASTATIN CALCIUM
     Indication: BLOOD CHOLESTEROL INCREASED
     Dosage: 80 MILLIGRAM, QD
     Route: 048
     Dates: start: 1985
  17. PULMICORT FLEXHALER [Suspect]
     Active Substance: BUDESONIDE
     Indication: RESPIRATORY DISORDER
     Dosage: 180 MCG, 1 PUFF TWICE DAILY
     Route: 055
     Dates: start: 201002, end: 201002
  18. SEROQUEL [Suspect]
     Active Substance: QUETIAPINE FUMARATE
     Route: 048
  19. PULMICORT FLEXHALER [Suspect]
     Active Substance: BUDESONIDE
     Dosage: 180 MCG, 1 PUFF DAILY
     Route: 055
     Dates: start: 201002
  20. PULMICORT FLEXHALER [Suspect]
     Active Substance: BUDESONIDE
     Dosage: 180 MCG, ONE PUFF IN AM ONE PUFF IN THE PM
     Route: 055
     Dates: start: 2013
  21. SYNTHROID [Concomitant]
     Active Substance: LEVOTHYROXINE SODIUM
     Indication: THYROID DISORDER
  22. PULMICORT FLEXHALER [Suspect]
     Active Substance: BUDESONIDE
     Indication: ASTHMA
     Dosage: 180 MCG,1 PUFF TWO TIMES A DAY
     Route: 055
     Dates: start: 20130813

REACTIONS (31)
  - Influenza [Recovered/Resolved]
  - Dyspepsia [Unknown]
  - Muscle strain [Unknown]
  - Electrolyte imbalance [Unknown]
  - Blood potassium decreased [Recovered/Resolved]
  - Product use issue [Unknown]
  - Lacrimation increased [Unknown]
  - Asthma [Recovered/Resolved]
  - Pain in extremity [Recovered/Resolved]
  - Off label use [Unknown]
  - Circumstance or information capable of leading to medication error [Unknown]
  - Tongue pruritus [Unknown]
  - Bronchitis [Recovered/Resolved]
  - Swollen tongue [Unknown]
  - Gastroenteritis viral [Recovered/Resolved]
  - Dyslexia [Unknown]
  - Arteriospasm coronary [Recovered/Resolved]
  - Oedema [Not Recovered/Not Resolved]
  - Mouth swelling [Unknown]
  - Device malfunction [Unknown]
  - Asthenia [Unknown]
  - Syncope [Unknown]
  - Choking [Unknown]
  - Visual impairment [Unknown]
  - Intentional product misuse [Unknown]
  - Body height decreased [Unknown]
  - Fall [Recovered/Resolved]
  - Spinal stenosis [Unknown]
  - Sleep disorder due to a general medical condition [Recovered/Resolved]
  - Head injury [Recovered/Resolved]
  - Tooth fracture [Recovered/Resolved]

NARRATIVE: CASE EVENT DATE: 200802
